FAERS Safety Report 5479135-0 (Version None)
Quarter: 2007Q4

REPORT INFORMATION
  Report Type: 
  Country: None (occurrence: None)
  Receive Date: 20071006
  Receipt Date: 20070828
  Transmission Date: 20080405
  Serious: Yes (Other)
  Sender: FDA-Public Use
  Company Number: NL-PFIZER INC-2007081195

PATIENT
  Sex: Female

DRUGS (1)
  1. VIRACEPT [Suspect]

REACTIONS (1)
  - ABORTION SPONTANEOUS [None]
